FAERS Safety Report 7313122-2 (Version None)
Quarter: 2011Q1

REPORT INFORMATION
  Report Type: 
  Country: None (occurrence: None)
  Receive Date: 20110215
  Receipt Date: 20110215
  Transmission Date: 20110831
  Serious: No
  Sender: FDA-Public Use
  Company Number: None

PATIENT
  Age: 45 Year
  Sex: Female
  Weight: 64.1 kg

DRUGS (1)
  1. HYDROMORPHONE HCL [Suspect]
     Dosage: 2 MG ONCE IV
     Route: 042
     Dates: start: 20101213, end: 20101213

REACTIONS (1)
  - PRURITUS [None]
